FAERS Safety Report 8029575-0 (Version None)
Quarter: 2012Q1

REPORT INFORMATION
  Report Type: 
  Country: None (occurrence: None)
  Receive Date: 20120109
  Receipt Date: 20120106
  Transmission Date: 20120608
  Serious: No
  Sender: FDA-Public Use
  Company Number: US-PFIZER INC-2012005012

PATIENT
  Sex: Female
  Weight: 73.46 kg

DRUGS (8)
  1. LIPITOR [Suspect]
     Dosage: UNK
     Route: 048
  2. LORAZEPAM [Concomitant]
     Dosage: 5 MG, 3X/DAY
  3. LISINOPRIL [Concomitant]
     Indication: BLOOD PRESSURE ABNORMAL
     Dosage: 40 MG, DAILY
  4. BILBERRY [Concomitant]
     Indication: EYE DISORDER
     Dosage: UNK
  5. AMLODIPINE [Concomitant]
     Dosage: 5 MG, DAILY
  6. LIPITOR [Suspect]
     Indication: CAROTID ARTERY OCCLUSION
     Dosage: 10 MG, DAILY
     Route: 048
  7. HYDROCHLOROTHIAZIDE [Concomitant]
     Indication: BLOOD PRESSURE ABNORMAL
     Dosage: 25 MG, DAILY
  8. ACETYLSALICYLIC ACID [Concomitant]
     Indication: CARDIOVASCULAR EVENT PROPHYLAXIS
     Dosage: 81 MG, DAILY

REACTIONS (1)
  - WEIGHT INCREASED [None]
